FAERS Safety Report 25792845 (Version 1)
Quarter: 2025Q3

REPORT INFORMATION
  Report Type: Spontaneous
  Country: US (occurrence: None)
  Receive Date: 20250911
  Receipt Date: 20250911
  Transmission Date: 20251021
  Serious: Yes (Disabling)
  Sender: FDA-CTU
  Company Number: None

PATIENT
  Age: 68 Year
  Sex: Male
  Weight: 81 kg

DRUGS (4)
  1. VYVGART HYTRULO [Suspect]
     Active Substance: EFGARTIGIMOD ALFA\HYALURONIDASE-QVFC
     Indication: Chronic inflammatory demyelinating polyradiculoneuropathy
     Route: 058
     Dates: start: 20250630, end: 20250707
  2. HUMAN IMMUNOGLOBULIN G [Concomitant]
     Active Substance: HUMAN IMMUNOGLOBULIN G
  3. VITAMINS [Concomitant]
     Active Substance: VITAMINS
  4. Vit B-12 [Concomitant]

REACTIONS (7)
  - Hemiplegia [None]
  - Fall [None]
  - Walking aid user [None]
  - Cerebrovascular accident [None]
  - Therapy cessation [None]
  - Loss of employment [None]
  - Product communication issue [None]

NARRATIVE: CASE EVENT DATE: 20250707
